FAERS Safety Report 9655164 (Version 2)
Quarter: 2013Q4

REPORT INFORMATION
  Report Type: Spontaneous
  Country: US (occurrence: US)
  Receive Date: 20131029
  Receipt Date: 20131029
  Transmission Date: 20140711
  Serious: No
  Sender: FDA-Public Use
  Company Number: US-PURDUE-USA-2011-0066454

PATIENT
  Age: 80 Year
  Sex: Female
  Weight: 38.55 kg

DRUGS (6)
  1. OXYCONTIN (NDA 22-272) [Suspect]
     Indication: TONGUE NEOPLASM
     Dosage: 30 MG, TID
     Dates: start: 20000720
  2. OXYCONTIN (NDA 22-272) [Suspect]
     Indication: ORAL PAIN
     Dosage: 10 MG, TID
     Route: 048
     Dates: start: 2010
  3. OXYCONTIN (NDA 22-272) [Suspect]
     Indication: PAIN
     Dosage: 90 MG, DAILY
  4. LEVOTHROID [Concomitant]
     Indication: PRODUCT USED FOR UNKNOWN INDICATION
     Dosage: 100 MCG, DAILY
  5. GABAPENTIN [Concomitant]
     Indication: PRODUCT USED FOR UNKNOWN INDICATION
     Dosage: 300 MG, DAILY
  6. LOVASTATIN [Concomitant]
     Indication: PRODUCT USED FOR UNKNOWN INDICATION
     Dosage: 40 MG, DAILY

REACTIONS (8)
  - Foreign body [Not Recovered/Not Resolved]
  - Oesophageal stenosis [Unknown]
  - Saliva altered [Unknown]
  - Fear [Not Recovered/Not Resolved]
  - Flatulence [Not Recovered/Not Resolved]
  - Diarrhoea [Not Recovered/Not Resolved]
  - Product quality issue [Not Recovered/Not Resolved]
  - Product size issue [Not Recovered/Not Resolved]
